FAERS Safety Report 9327455 (Version 1)
Quarter: 2013Q2

REPORT INFORMATION
  Report Type: Spontaneous
  Country: US (occurrence: US)
  Receive Date: 20130604
  Receipt Date: 20130604
  Transmission Date: 20140414
  Serious: No
  Sender: FDA-Public Use
  Company Number: US-PFIZER INC-2013166597

PATIENT
  Age: 82 Year
  Sex: Male
  Weight: 60 kg

DRUGS (5)
  1. PROTONIX [Suspect]
     Indication: DYSPEPSIA
     Dosage: 40 MG, 1X/DAY
     Dates: start: 201304
  2. PROTONIX [Suspect]
     Dosage: 40 MG, ALTERNATE DAY
  3. ASPIRIN [Concomitant]
     Indication: STENT PLACEMENT
     Dosage: UNK
  4. PLAVIX [Concomitant]
     Indication: STENT PLACEMENT
     Dosage: UNK
  5. CRESTOR [Concomitant]
     Indication: BLOOD CHOLESTEROL DECREASED
     Dosage: UNK

REACTIONS (3)
  - Dry mouth [Not Recovered/Not Resolved]
  - Decreased appetite [Recovering/Resolving]
  - Abdominal pain upper [Recovered/Resolved]
